FAERS Safety Report 17820953 (Version 1)
Quarter: 2020Q2

REPORT INFORMATION
  Report Type: Other
  Country: NL (occurrence: NL)
  Receive Date: 20200525
  Receipt Date: 20200525
  Transmission Date: 20200714
  Serious: Yes (Death, Hospitalization)
  Sender: FDA-Public Use
  Company Number: NL-ACCORD-182505

PATIENT
  Age: 9 Year
  Sex: Female

DRUGS (9)
  1. PREDNISONE. [Suspect]
     Active Substance: PREDNISONE
     Indication: PRODUCT USED FOR UNKNOWN INDICATION
  2. PYRAZINAMIDE. [Concomitant]
     Active Substance: PYRAZINAMIDE
  3. RIFAMPICIN [Concomitant]
     Active Substance: RIFAMPIN
  4. CICLOSPORIN [Suspect]
     Active Substance: CYCLOSPORINE
     Indication: JUVENILE IDIOPATHIC ARTHRITIS
     Dates: end: 2001
  5. METHYLPREDNISOLONE. [Suspect]
     Active Substance: METHYLPREDNISOLONE
     Indication: JUVENILE IDIOPATHIC ARTHRITIS
     Dosage: PULSES
  6. METHOTREXATE. [Suspect]
     Active Substance: METHOTREXATE
     Indication: JUVENILE IDIOPATHIC ARTHRITIS
  7. INFLIXIMAB [Suspect]
     Active Substance: INFLIXIMAB
     Indication: PRODUCT USED FOR UNKNOWN INDICATION
     Dosage: 20 MG/KG, QMO
     Dates: start: 200201
  8. ETANERCEPT [Suspect]
     Active Substance: ETANERCEPT
     Indication: PRODUCT USED FOR UNKNOWN INDICATION
     Dosage: 0.8 MG/KG TWICE A WEEK
     Dates: start: 2001
  9. ISONIAZID. [Concomitant]
     Active Substance: ISONIAZID

REACTIONS (16)
  - Respiratory failure [Fatal]
  - Death [Fatal]
  - Cardiac arrest [Fatal]
  - Oxygen saturation decreased [Fatal]
  - Pneumonia [Fatal]
  - Immune system disorder [Fatal]
  - Cardiopulmonary failure [Fatal]
  - Escherichia infection [Fatal]
  - Lymphopenia [Fatal]
  - Tuberculosis [Fatal]
  - Pneumonia lipoid [Fatal]
  - Opportunistic infection [Fatal]
  - Central venous pressure increased [Fatal]
  - Bacterial test positive [Fatal]
  - Device related infection [Fatal]
  - Cyst [Fatal]
